FAERS Safety Report 15527114 (Version 7)
Quarter: 2021Q1

REPORT INFORMATION
  Report Type: Report from Study
  Country: CA (occurrence: CA)
  Receive Date: 20181018
  Receipt Date: 20210304
  Transmission Date: 20210419
  Serious: Yes (Hospitalization)
  Sender: FDA-Public Use
  Company Number: PHHY2018CA108869

PATIENT
  Age: 77 Year
  Sex: Female

DRUGS (5)
  1. KISQALI [Suspect]
     Active Substance: RIBOCICLIB
     Indication: BREAST CANCER METASTATIC
     Dosage: 600 MG, QD
     Route: 065
     Dates: start: 20180828, end: 20180904
  2. KISQALI [Interacting]
     Active Substance: RIBOCICLIB
     Dosage: UNK
     Route: 048
     Dates: start: 20180829
  3. COUMADIN [Interacting]
     Active Substance: WARFARIN SODIUM
     Dosage: 5 MG, QD
     Route: 065
     Dates: end: 20180902
  4. COUMADIN [Interacting]
     Active Substance: WARFARIN SODIUM
     Indication: ATRIAL FIBRILLATION
     Dosage: 2.5 MG, (6 DAYS)
     Route: 065
  5. KISQALI [Interacting]
     Active Substance: RIBOCICLIB
     Dosage: 200 MG, UNK
     Route: 065
     Dates: start: 20181007

REACTIONS (5)
  - International normalised ratio increased [Recovered/Resolved]
  - Haemoptysis [Recovered/Resolved]
  - Drug interaction [Recovered/Resolved]
  - Weight decreased [Unknown]
  - Malaise [Unknown]

NARRATIVE: CASE EVENT DATE: 20180901
